FAERS Safety Report 25812514 (Version 1)
Quarter: 2025Q3

REPORT INFORMATION
  Report Type: Report from Study
  Country: US (occurrence: US)
  Receive Date: 20250917
  Receipt Date: 20250917
  Transmission Date: 20251020
  Serious: Yes (Hospitalization, Other)
  Sender: BAYER HEALTHCARE PHARMACEUTICALS INC.
  Company Number: US-BAYER-2025A118986

PATIENT
  Age: 54 Year
  Sex: Male

DRUGS (2)
  1. NUBEQA [Suspect]
     Active Substance: DAROLUTAMIDE
     Indication: Prostate cancer metastatic
     Dosage: 600 MG, BID
     Route: 048
     Dates: start: 20250825, end: 20250902
  2. NUBEQA [Suspect]
     Active Substance: DAROLUTAMIDE
     Indication: Prostate cancer metastatic

REACTIONS (6)
  - Musculoskeletal stiffness [Recovering/Resolving]
  - Extremity contracture [Recovering/Resolving]
  - Pain in extremity [Recovered/Resolved]
  - Haemoglobin abnormal [Recovered/Resolved]
  - Pain in extremity [Recovering/Resolving]
  - Musculoskeletal disorder [Recovering/Resolving]

NARRATIVE: CASE EVENT DATE: 20250101
